FAERS Safety Report 16808497 (Version 2)
Quarter: 2019Q4

REPORT INFORMATION
  Report Type: Spontaneous
  Country: FR (occurrence: FR)
  Receive Date: 20190916
  Receipt Date: 20191220
  Transmission Date: 20200122
  Serious: Yes (Hospitalization)
  Sender: FDA-Public Use
  Company Number: FR-SUN PHARMACEUTICAL INDUSTRIES LTD-2019RR-220799

PATIENT
  Age: 19 Year
  Sex: Female

DRUGS (5)
  1. NAPROXENE [Suspect]
     Active Substance: NAPROXEN
     Indication: BACK PAIN
     Dosage: 1100 MILLIGRAMS, DAILY
     Route: 048
     Dates: start: 20190731, end: 20190816
  2. PARACETAMOL [Suspect]
     Active Substance: ACETAMINOPHEN
     Indication: BACK PAIN
     Dosage: ()UNK
     Route: 048
     Dates: start: 20190731, end: 20190816
  3. CODOLIPRANE [Suspect]
     Active Substance: ACETAMINOPHEN\CODEINE PHOSPHATE
     Indication: BACK PAIN
     Dosage: ()UNK
     Route: 048
     Dates: start: 20190816, end: 20190816
  4. ALPRAZOLAM. [Suspect]
     Active Substance: ALPRAZOLAM
     Indication: BACK PAIN
     Dosage: ()UNK
     Route: 048
     Dates: start: 20190731, end: 20190816
  5. LUMIRELAX 500 MG, COMPRIME [Suspect]
     Active Substance: METHOCARBAMOL
     Indication: BACK PAIN
     Dosage: ()UNK
     Route: 048
     Dates: start: 20190816, end: 20190816

REACTIONS (1)
  - Pancreatitis acute [Recovering/Resolving]

NARRATIVE: CASE EVENT DATE: 20190816
